FAERS Safety Report 23207012 (Version 1)
Quarter: 2023Q4

REPORT INFORMATION
  Report Type: Other
  Country: US (occurrence: US)
  Receive Date: 20231120
  Receipt Date: 20231120
  Transmission Date: 20240110
  Serious: No
  Sender: FDA-Public Use
  Company Number: US-UROVANT SCIENCES GMBH-202309-URV-001826

PATIENT
  Age: 50 Year
  Sex: Female
  Weight: 65.306 kg

DRUGS (1)
  1. GEMTESA [Suspect]
     Active Substance: VIBEGRON
     Indication: Hypertonic bladder
     Dosage: 75 MG, QD
     Route: 048
     Dates: start: 20230914

REACTIONS (2)
  - Erythema [Recovered/Resolved]
  - Skin warm [Recovered/Resolved]

NARRATIVE: CASE EVENT DATE: 20230914
